FAERS Safety Report 5979500-9 (Version None)
Quarter: 2008Q4

REPORT INFORMATION
  Report Type: 
  Country: None (occurrence: None)
  Receive Date: 20081204
  Receipt Date: 20081201
  Transmission Date: 20090506
  Serious: Yes (Life-Threatening, Other)
  Sender: FDA-Public Use
  Company Number: US-ROXANE LABORATORIES, INC.-2008-RO-00308RO

PATIENT
  Age: 73 Year
  Sex: Female

DRUGS (20)
  1. CITALOPRAM HYDROBROMIDE [Suspect]
     Indication: DEPRESSION
     Dosage: 40MG
  2. FLUCONAZOLE [Suspect]
     Dosage: 100MG
  3. CYCLOPHOSPHAMIDE [Suspect]
     Indication: LYMPHOMA
  4. METHOTREXATE [Suspect]
     Indication: LYMPHOMA
  5. AMLODIPINE [Suspect]
     Dosage: 10MG
  6. ETOPOSIDE [Suspect]
     Indication: LYMPHOMA
  7. CYTARABINE [Suspect]
     Indication: LYMPHOMA
  8. IFOSFAMIDE [Suspect]
     Indication: LYMPHOMA
  9. DOXORUBICIN HCL [Suspect]
     Indication: LYMPHOMA
  10. VINCRISTINE [Suspect]
     Indication: LYMPHOMA
  11. METHYLENE BLUE [Suspect]
     Indication: DELIRIUM
  12. OLANZAPINE [Suspect]
     Indication: DELIRIUM
  13. OLANZAPINE [Suspect]
     Dosage: 7.5MG
  14. CLONAZEPAM [Suspect]
  15. LEVOFLOXACIN [Suspect]
     Dosage: 500MG
  16. METOPROLOL SUCCINATE [Suspect]
     Dosage: 100MG
  17. ACYCLOVIR [Suspect]
  18. VANCOMYCIN [Suspect]
  19. VALSARTAN [Suspect]
     Dosage: 160MG
  20. PANTOPRAZOLE SODIUM [Suspect]
     Dosage: 40MG

REACTIONS (3)
  - DRUG INTERACTION [None]
  - PANCYTOPENIA [None]
  - SEROTONIN SYNDROME [None]
